FAERS Safety Report 19006336 (Version 1)
Quarter: 2021Q1

REPORT INFORMATION
  Report Type: Report from Study
  Country: None (occurrence: DE)
  Receive Date: 20210315
  Receipt Date: 20210315
  Transmission Date: 20210420
  Serious: Yes (Other)
  Sender: FDA-Public Use
  Company Number: DE-ABBVIE-21K-062-3814289-00

PATIENT
  Sex: Female

DRUGS (3)
  1. HUMIRA [Suspect]
     Active Substance: ADALIMUMAB
     Indication: CROHN^S DISEASE
     Route: 058
     Dates: start: 20110609
  2. CORTISON [Suspect]
     Active Substance: CORTISONE ACETATE
     Dosage: UP TO 170 MG IN SOME CASES
     Route: 065
  3. CORTISON [Suspect]
     Active Substance: CORTISONE ACETATE
     Indication: CROHN^S DISEASE
     Route: 065

REACTIONS (5)
  - Weight increased [Not Recovered/Not Resolved]
  - Stress [Not Recovered/Not Resolved]
  - Deafness [Recovered/Resolved]
  - Crohn^s disease [Unknown]
  - Blood pressure increased [Unknown]

NARRATIVE: CASE EVENT DATE: 2021
